FAERS Safety Report 6844998-0 (Version None)
Quarter: 2010Q3

REPORT INFORMATION
  Report Type: 
  Country: None (occurrence: None)
  Receive Date: 20100715
  Receipt Date: 20061220
  Transmission Date: 20110219
  Serious: Yes (Other)
  Sender: FDA-Public Use
  Company Number: US-PFIZER INC-2006155378

PATIENT
  Sex: Male
  Weight: 68.49 kg

DRUGS (3)
  1. CHANTIX [Suspect]
     Indication: SMOKING CESSATION THERAPY
     Dates: start: 20061211
  2. DIAZEPAM [Concomitant]
  3. BUSPIRONE [Concomitant]

REACTIONS (5)
  - ABNORMAL DREAMS [None]
  - CONSTIPATION [None]
  - FLATULENCE [None]
  - HALLUCINATION [None]
  - HEADACHE [None]
